FAERS Safety Report 8816615 (Version 1)
Quarter: 2012Q4

REPORT INFORMATION
  Report Type: Spontaneous
  Country: NO (occurrence: None)
  Receive Date: 20120928
  Receipt Date: 20120928
  Transmission Date: 20130627
  Serious: Yes (Other)
  Sender: FDA-Public Use
  Company Number: SULF20120007

PATIENT
  Sex: Female

DRUGS (1)
  1. SULFASALAZINE [Suspect]
     Indication: RHEUMATOID ARTHRITIS
     Dates: start: 1993, end: 2005

REACTIONS (5)
  - Synovitis [None]
  - Pneumonia [None]
  - Urinary tract infection [None]
  - Necrotising fasciitis streptococcal [None]
  - Osteomyelitis [None]
